FAERS Safety Report 4670384-8 (Version None)
Quarter: 2005Q2

REPORT INFORMATION
  Report Type: 
  Country: None (occurrence: None)
  Receive Date: 20050520
  Receipt Date: 20050510
  Transmission Date: 20051028
  Serious: Yes (Hospitalization)
  Sender: FDA-Public Use
  Company Number: HQWYE648411MAY05

PATIENT
  Age: 4 Year
  Sex: Female

DRUGS (3)
  1. CHILDREN'S ADVIL [Suspect]
     Indication: PYREXIA
     Dosage: 112 MG 8X PER 1 D
     Route: 048
     Dates: start: 20050324, end: 20040325
  2. CHILDREN'S ADVIL [Suspect]
     Indication: RHINITIS
     Dosage: 112 MG 8X PER 1 D
     Route: 048
     Dates: start: 20050324, end: 20040325
  3. DOLIPRANE         (PARACETAMOL) [Concomitant]

REACTIONS (4)
  - ABDOMINAL PAIN [None]
  - OVERDOSE [None]
  - PLEURISY [None]
  - PNEUMONIA [None]
